FAERS Safety Report 17339485 (Version 1)
Quarter: 2020Q1

REPORT INFORMATION
  Report Type: Spontaneous
  Country: US (occurrence: US)
  Receive Date: 20200128
  Receipt Date: 20200128
  Transmission Date: 20200409
  Serious: Yes (Life-Threatening, Disabling, Other)
  Sender: FDA-Public Use
  Company Number: None

PATIENT
  Age: 59 Year
  Sex: Female
  Weight: 113.4 kg

DRUGS (3)
  1. CLONAZEPAM. [Suspect]
     Active Substance: CLONAZEPAM
     Indication: ANXIETY
  2. CLONAZEPAM. [Suspect]
     Active Substance: CLONAZEPAM
     Indication: PANIC DISORDER
  3. GENERIC PROTONIX [Suspect]
     Active Substance: PANTOPRAZOLE SODIUM

REACTIONS (7)
  - Drug ineffective [None]
  - Weight decreased [None]
  - Vision blurred [None]
  - Diarrhoea [None]
  - Abnormal behaviour [None]
  - Product substitution issue [None]
  - Blindness [None]

NARRATIVE: CASE EVENT DATE: 20191003
